FAERS Safety Report 21073850 (Version 1)
Quarter: 2022Q3

REPORT INFORMATION
  Report Type: Spontaneous
  Country: US (occurrence: US)
  Receive Date: 20220713
  Receipt Date: 20220713
  Transmission Date: 20221027
  Serious: No
  Sender: FDA-Public Use
  Company Number: US-drreddys-SPO/USA/22/0151906

PATIENT
  Age: 23 Year
  Sex: Female

DRUGS (1)
  1. ZENATANE [Suspect]
     Active Substance: ISOTRETINOIN
     Indication: Acne
     Dosage: RMA ISSUE DATE: 8 FEBRUARY 2022 11:19:42 AM AND 18 APRIL 2022 11:42:53 AM

REACTIONS (1)
  - Adverse drug reaction [Unknown]
